FAERS Safety Report 19048310 (Version 2)
Quarter: 2021Q2

REPORT INFORMATION
  Report Type: Spontaneous
  Country: DE (occurrence: DE)
  Receive Date: 20210324
  Receipt Date: 20210412
  Transmission Date: 20210717
  Serious: Yes (Other)
  Sender: FDA-Public Use
  Company Number: DE-AMGEN-DEUSP2021041788

PATIENT
  Age: 35 Year
  Sex: Female

DRUGS (1)
  1. XGEVA [Suspect]
     Active Substance: DENOSUMAB
     Indication: BONE GIANT CELL TUMOUR
     Dosage: 120 MILLIGRAM, QMO
     Route: 058
     Dates: start: 201608, end: 201706

REACTIONS (1)
  - Bone giant cell tumour [Recovered/Resolved]

NARRATIVE: CASE EVENT DATE: 2017
